FAERS Safety Report 6501660-1 (Version None)
Quarter: 2009Q4

REPORT INFORMATION
  Report Type: 
  Country: None (occurrence: None)
  Receive Date: 20091127
  Receipt Date: 20090306
  Transmission Date: 20100525
  Serious: Yes (Disabling)
  Sender: FDA-Public Use
  Company Number: WAES 0809USA02852

PATIENT
  Age: 62 Year
  Sex: Female

DRUGS (2)
  1. FOSAMAX [Suspect]
     Indication: OSTEOPENIA
     Dosage: 70 MG/PO; 35 MG/PO
     Route: 048
     Dates: start: 20020719, end: 20020805
  2. FOSAMAX [Suspect]
     Indication: OSTEOPENIA
     Dosage: 70 MG/PO; 35 MG/PO
     Route: 048
     Dates: start: 20020901, end: 20060401

REACTIONS (9)
  - BONE DISORDER [None]
  - BRUXISM [None]
  - EAR DISORDER [None]
  - GINGIVAL BLEEDING [None]
  - HYPOAESTHESIA ORAL [None]
  - OSTEONECROSIS [None]
  - OVARIAN DISORDER [None]
  - PARAESTHESIA ORAL [None]
  - TEMPOROMANDIBULAR JOINT SYNDROME [None]
